FAERS Safety Report 18888473 (Version 3)
Quarter: 2021Q4

REPORT INFORMATION
  Report Type: Report from Study
  Country: US (occurrence: US)
  Receive Date: 20210213
  Receipt Date: 20211020
  Transmission Date: 20220304
  Serious: No
  Sender: FDA-Public Use
  Company Number: NVSC2021US033468

PATIENT
  Sex: Female

DRUGS (1)
  1. ENTRESTO [Suspect]
     Active Substance: SACUBITRIL\VALSARTAN
     Indication: Product used for unknown indication
     Dosage: UNK, BID
     Route: 048

REACTIONS (7)
  - Weight increased [Recovered/Resolved]
  - Fluid retention [Unknown]
  - Palpitations [Unknown]
  - Weight fluctuation [Recovered/Resolved]
  - Intra-abdominal fluid collection [Unknown]
  - Constipation [Unknown]
  - Weight fluctuation [Recovering/Resolving]
